FAERS Safety Report 5640065-2 (Version None)
Quarter: 2008Q1

REPORT INFORMATION
  Report Type: 
  Country: None (occurrence: None)
  Receive Date: 20080225
  Receipt Date: 20080213
  Transmission Date: 20080703
  Serious: Yes (Life-Threatening)
  Sender: FDA-Public Use
  Company Number: 2008-01373

PATIENT
  Age: 64 Year
  Sex: Male

DRUGS (16)
  1. BISOPROLOL FUMARATE AND HYDROCHLOROTHIAZIDE [Suspect]
     Dosage: ORAL
     Route: 048
  2. TIMOLOL MALEATE [Suspect]
     Dosage: INTRAOCULAR
     Route: 031
     Dates: start: 20071001
  3. LIDOCAINE HCL [Suspect]
     Indication: CATHETER PLACEMENT
     Dosage: 3 ML, SINGLE, INTRATHECAL
     Route: 037
     Dates: start: 20071001
  4. FENTANYL CITRATE [Suspect]
     Indication: ANALGESIA
     Dosage: 150 MCG, INTRAVENOUS
     Route: 042
     Dates: start: 20071001
  5. ISOFLURANE [Suspect]
     Indication: ANAESTHESIA
     Dosage: RESPIRATORY
     Dates: start: 20071001
  6. BUPIVACAINE [Suspect]
     Indication: PARALYSIS
     Dosage: 0.5%, INTRAVENOUS
     Route: 042
     Dates: start: 20071001
  7. BUPIVACAINE [Suspect]
     Indication: ANAESTHESIA
     Dosage: 0.25% , SINGLE, INTRAVENOUS
     Route: 042
     Dates: start: 20071001
  8. ROCURONIUM BROMIDE [Suspect]
     Indication: PARALYSIS
     Dosage: 50 MG, SINGLE, INTRAVENOUS
     Route: 042
     Dates: start: 20071001
  9. PROPOFOL [Suspect]
     Indication: DRUG USE FOR UNKNOWN INDICATION
     Dosage: 150 MG, INTRAVENOUS
     Route: 042
     Dates: start: 20071001
  10. NITROUS OXIDE W/ OXYGEN [Suspect]
     Indication: PARALYSIS
     Dosage: RESPIRATORY
     Route: 055
     Dates: start: 20071001
  11. MIDAZOLAM HCL [Suspect]
     Dosage: 1.5 MG, SINGLE, INTRAVENOUS
     Route: 042
     Dates: start: 20071001
  12. RAMIPRIL [Concomitant]
  13. SIMVASTATIN [Concomitant]
  14. TAMSULOSIN HCL [Concomitant]
  15. REPLAVITE [Concomitant]
  16. LATANOPROST [Concomitant]

REACTIONS (2)
  - CARDIAC ARREST [None]
  - PROCEDURAL COMPLICATION [None]
